FAERS Safety Report 8462266-0 (Version None)
Quarter: 2012Q2

REPORT INFORMATION
  Report Type: 
  Country: None (occurrence: None)
  Receive Date: 20120625
  Receipt Date: 20120615
  Transmission Date: 20120825
  Serious: Yes (Hospitalization)
  Sender: FDA-Public Use
  Company Number: CN-ASTRAZENECA-2012SE40385

PATIENT
  Age: 20414 Day
  Sex: Female

DRUGS (4)
  1. FASLODEX [Suspect]
     Indication: BREAST CANCER
     Route: 030
     Dates: start: 20120426, end: 20120426
  2. FASLODEX [Suspect]
     Route: 030
     Dates: start: 20120509, end: 20120509
  3. ENALAPRIL MALEATE [Concomitant]
     Indication: HYPERTENSION
     Route: 048
  4. FASLODEX [Suspect]
     Route: 030
     Dates: start: 20120524, end: 20120524

REACTIONS (5)
  - ANAEMIA [None]
  - DYSPNOEA [None]
  - PLATELET COUNT DECREASED [None]
  - PALPITATIONS [None]
  - LUNG INFECTION [None]
